FAERS Safety Report 7937572-6 (Version None)
Quarter: 2011Q4

REPORT INFORMATION
  Report Type: 
  Country: None (occurrence: None)
  Receive Date: 20111123
  Receipt Date: 20111121
  Transmission Date: 20120403
  Serious: Yes (Other)
  Sender: FDA-Public Use
  Company Number: US-AMGEN-USASP2011060498

PATIENT
  Sex: Female

DRUGS (2)
  1. IGG [Concomitant]
     Indication: PLATELET COUNT DECREASED
  2. NPLATE [Suspect]
     Indication: PLATELET COUNT DECREASED
     Dosage: UNK MUG, UNK

REACTIONS (1)
  - PLATELET COUNT DECREASED [None]
